FAERS Safety Report 9286593 (Version 1)
Quarter: 2013Q2

REPORT INFORMATION
  Report Type: Other
  Country: DE (occurrence: DE)
  Receive Date: 20130513
  Receipt Date: 20130513
  Transmission Date: 20140414
  Serious: Yes (Other)
  Sender: FDA-Public Use
  Company Number: DE-ACTAVIS-2013-08733

PATIENT
  Age: 32 Year
  Sex: Female

DRUGS (3)
  1. IBUPROFEN (UNKNOWN) [Suspect]
     Indication: ANKYLOSING SPONDYLITIS
     Dosage: 300 MG, DAILY
     Route: 048
     Dates: start: 20120301, end: 20120925
  2. DAIVOBET [Concomitant]
     Indication: PSORIASIS
     Dosage: SMALL AREA, UNK
     Route: 065
     Dates: start: 20120201
  3. KADEFUNGIN [Concomitant]
     Indication: VULVOVAGINAL MYCOTIC INFECTION
     Dosage: 20 MG, DAILY
     Route: 065

REACTIONS (7)
  - Placental insufficiency [Unknown]
  - Oligohydramnios [Unknown]
  - Vaginal haemorrhage [Unknown]
  - Stillbirth [Unknown]
  - Exposure during pregnancy [Unknown]
  - Abortion induced [None]
  - Maternal drugs affecting foetus [None]
